FAERS Safety Report 25153819 (Version 1)
Quarter: 2025Q2

REPORT INFORMATION
  Report Type: Spontaneous
  Country: US (occurrence: US)
  Receive Date: 20250403
  Receipt Date: 20250403
  Transmission Date: 20250717
  Serious: No
  Sender: ROCHE
  Company Number: US-ROCHE-10000245821

PATIENT
  Age: 65 Year

DRUGS (1)
  1. OCREVUS [Suspect]
     Active Substance: OCRELIZUMAB
     Indication: Product used for unknown indication
     Route: 065

REACTIONS (6)
  - Ill-defined disorder [Unknown]
  - Chills [Unknown]
  - Hot flush [Unknown]
  - Asthenia [Unknown]
  - Palpitations [Unknown]
  - Off label use [Unknown]
